FAERS Safety Report 8950050 (Version 1)
Quarter: 2012Q4

REPORT INFORMATION
  Report Type: 
  Country: US (occurrence: US)
  Receive Date: 20121205
  Receipt Date: 20121205
  Transmission Date: 20130627
  Serious: Yes (Hospitalization)
  Sender: FDA-Public Use
  Company Number: US-ASTELLAS-2012US010549

PATIENT
  Age: 61 None
  Sex: Female

DRUGS (1)
  1. TARCEVA [Suspect]
     Indication: LUNG ADENOCARCINOMA METASTATIC
     Dosage: UNK
     Route: 048
     Dates: start: 20121009, end: 20121013

REACTIONS (2)
  - Hyperbilirubinaemia [Recovering/Resolving]
  - Liver disorder [Not Recovered/Not Resolved]
